FAERS Safety Report 4879810-2 (Version None)
Quarter: 2006Q1

REPORT INFORMATION
  Report Type: 
  Country: None (occurrence: None)
  Receive Date: 20060111
  Receipt Date: 20050817
  Transmission Date: 20060701
  Serious: Yes (Other)
  Sender: FDA-Public Use
  Company Number: 2005-CZ-00493

PATIENT
  Age: 65 Year
  Sex: Male

DRUGS (3)
  1. PREDNISOLONE TAB [Suspect]
     Indication: POLYMYALGIA RHEUMATICA
     Dosage: 1 MG, ORAL
     Route: 048
     Dates: start: 19990101
  2. SERETIDE [Concomitant]
  3. ALBUTEROL [Concomitant]

REACTIONS (2)
  - COMMUNICATION DISORDER [None]
  - CONDUCTIVE DEAFNESS [None]
